FAERS Safety Report 22346903 (Version 2)
Quarter: 2023Q2

REPORT INFORMATION
  Report Type: Spontaneous
  Country: FR (occurrence: FR)
  Receive Date: 20230520
  Receipt Date: 20230601
  Transmission Date: 20230722
  Serious: Yes (Death)
  Sender: FDA-Public Use
  Company Number: FR-AMGEN-FRASP2023087138

PATIENT
  Age: 53 Year
  Weight: 69 kg

DRUGS (4)
  1. LUMAKRAS [Suspect]
     Active Substance: SOTORASIB
     Indication: Lung adenocarcinoma
     Dosage: 480 MILLIGRAM, QD
     Route: 065
     Dates: start: 20230327
  2. LUMAKRAS [Suspect]
     Active Substance: SOTORASIB
     Dosage: 6 DOSAGE FORM, QD (DOSE REDUCED)
     Route: 065
     Dates: start: 20230428
  3. LUMAKRAS [Suspect]
     Active Substance: SOTORASIB
     Dosage: 4 DOSAGE FORM, QD (DOSE REDUCE)
     Route: 065
     Dates: start: 20230506, end: 20230510
  4. ELIQUIS [Concomitant]
     Active Substance: APIXABAN
     Dosage: 2.5 MILLIGRAM (2.5 MG X 2/DAY)
     Dates: start: 202206

REACTIONS (5)
  - Cardio-respiratory arrest [Fatal]
  - Lung consolidation [Unknown]
  - Oxygen saturation decreased [Unknown]
  - Headache [Unknown]
  - Cough [Not Recovered/Not Resolved]

NARRATIVE: CASE EVENT DATE: 20230512
